FAERS Safety Report 9925766 (Version 1)
Quarter: 2014Q1

REPORT INFORMATION
  Report Type: Spontaneous
  Country: US (occurrence: US)
  Receive Date: 20140226
  Receipt Date: 20140226
  Transmission Date: 20141002
  Serious: Yes (Hospitalization)
  Sender: FDA-Public Use
  Company Number: US-BAYER-2014-029713

PATIENT
  Age: 39 Year
  Sex: Female
  Weight: 107 kg

DRUGS (5)
  1. SAFYRAL [Suspect]
  2. CYMBALTA [Concomitant]
     Dosage: 60 MG, DAILY
     Route: 048
  3. SUBOXONE [Concomitant]
     Dosage: 8MG/2MG DAILY
     Route: 048
  4. VALIUM [Concomitant]
     Indication: ANXIETY
     Dosage: 5 MG, UPTO 5 TIMES A DAY
     Route: 048
  5. VYVANSE [Concomitant]
     Indication: ATTENTION DEFICIT/HYPERACTIVITY DISORDER
     Dosage: 70 MG, DAILY
     Route: 048

REACTIONS (2)
  - Pulmonary embolism [None]
  - Deep vein thrombosis [None]
